FAERS Safety Report 9083874 (Version 1)
Quarter: 2013Q1

REPORT INFORMATION
  Report Type: Spontaneous
  Country: US (occurrence: US)
  Receive Date: 20130130
  Receipt Date: 20130130
  Transmission Date: 20140127
  Serious: Yes (Other)
  Sender: FDA-Public Use
  Company Number: US-PFIZER INC-2013037115

PATIENT
  Age: 44 Year
  Sex: Male
  Weight: 106.58 kg

DRUGS (3)
  1. LYRICA [Suspect]
     Indication: FIBROMYALGIA
     Dosage: 150 MG, 2X/DAY
     Route: 048
     Dates: start: 2011, end: 201301
  2. TOPAMAX [Concomitant]
     Indication: MIGRAINE
     Dosage: UNK
  3. NORCO [Concomitant]
     Indication: MIGRAINE
     Dosage: UNK

REACTIONS (3)
  - Mental disorder [Not Recovered/Not Resolved]
  - Malaise [Not Recovered/Not Resolved]
  - Pain [Not Recovered/Not Resolved]
